FAERS Safety Report 18044042 (Version 1)
Quarter: 2020Q3

REPORT INFORMATION
  Report Type: Spontaneous
  Country: US (occurrence: US)
  Receive Date: 20200718
  Receipt Date: 20200718
  Transmission Date: 20201103
  Serious: Yes (Hospitalization)
  Sender: FDA-Public Use
  Company Number: None

PATIENT
  Sex: Female
  Weight: 71.4 kg

DRUGS (1)
  1. ASPIRIN. [Suspect]
     Active Substance: ASPIRIN
     Dosage: 116 TABLET
     Dates: end: 20200717

REACTIONS (9)
  - Road traffic accident [None]
  - Subdural haematoma [None]
  - Haemorrhage [None]
  - Skin laceration [None]
  - Clavicle fracture [None]
  - Hand fracture [None]
  - Ulna fracture [None]
  - Injury [None]
  - Subarachnoid haemorrhage [None]

NARRATIVE: CASE EVENT DATE: 20200704
